FAERS Safety Report 10513890 (Version 2)
Quarter: 2014Q4

REPORT INFORMATION
  Report Type: Report from Study
  Country: IT (occurrence: IT)
  Receive Date: 20141013
  Receipt Date: 20141027
  Transmission Date: 20150528
  Serious: Yes (Death)
  Sender: FDA-Public Use
  Company Number: IT-VERTEX PHARMACEUTICALS-2014-004193

PATIENT
  Age: 42 Year
  Sex: Male
  Weight: 125 kg

DRUGS (3)
  1. TELAPREVIR [Suspect]
     Active Substance: TELAPREVIR
     Indication: CHRONIC HEPATITIS C
     Dosage: 22550 MG, BID
     Route: 048
     Dates: start: 20131009, end: 20140101
  2. PEGYLATED INTERFERON NOS [Suspect]
     Active Substance: PEGINTERFERON ALFA-2A OR PEGINTERFERON ALFA-2B OR PEGINTERFERON BETA-1A OR PEGINTERFERON LAMBDA-1A
     Indication: CHRONIC HEPATITIS C
     Dosage: 180 ?G, QW
     Route: 058
     Dates: start: 20131009, end: 20140903
  3. RIBAVIRIN. [Suspect]
     Active Substance: RIBAVIRIN
     Indication: CHRONIC HEPATITIS C
     Dosage: 1000 MG, QD
     Route: 048
     Dates: start: 20131009, end: 20140903

REACTIONS (1)
  - Splenic rupture [Fatal]

NARRATIVE: CASE EVENT DATE: 20140930
